FAERS Safety Report 9141647 (Version 3)
Quarter: 2014Q1

REPORT INFORMATION
  Report Type: Spontaneous
  Country: US (occurrence: US)
  Receive Date: 20130305
  Receipt Date: 20140203
  Transmission Date: 20141002
  Serious: No
  Sender: FDA-Public Use
  Company Number: US-AMGEN-USASP2013010346

PATIENT
  Age: 53 Year
  Sex: Male
  Weight: 129.25 kg

DRUGS (7)
  1. ENBREL [Suspect]
     Indication: RHEUMATOID ARTHRITIS
     Dosage: 50 MG, QWK
     Route: 058
     Dates: start: 20110930
  2. SYNTHROID [Concomitant]
     Dosage: 175 MUG, QD
  3. TRAMADOL [Concomitant]
     Dosage: 60 MG, AS NEEDED
  4. NAPROXEN [Concomitant]
     Dosage: 500 MG, BID
  5. ULTRAM                             /00599202/ [Concomitant]
     Dosage: UNK
  6. ZYRTEC [Concomitant]
     Dosage: UNK
  7. ASPIRIN [Concomitant]
     Dosage: 81 MG, QD

REACTIONS (8)
  - Nasal congestion [Recovered/Resolved]
  - Sinus congestion [Recovered/Resolved]
  - Joint swelling [Recovered/Resolved]
  - Arthralgia [Recovered/Resolved]
  - Pain [Recovered/Resolved]
  - Local swelling [Recovered/Resolved]
  - Paranasal sinus hypersecretion [Unknown]
  - Cough [Unknown]
